FAERS Safety Report 7757312-3 (Version None)
Quarter: 2011Q3

REPORT INFORMATION
  Report Type: 
  Country: None (occurrence: None)
  Receive Date: 20110916
  Receipt Date: 20110909
  Transmission Date: 20111222
  Serious: Yes (Death, Other)
  Sender: FDA-Public Use
  Company Number: US-BAYER-200917126NA

PATIENT
  Age: 74 Year
  Sex: Male
  Weight: 94.331 kg

DRUGS (15)
  1. ATENOLOL [Concomitant]
     Dosage: 50 MG, QD
     Route: 048
     Dates: start: 20030602
  2. PROPOFOL [Concomitant]
     Route: 042
  3. ESMOLOL HCL [Concomitant]
     Route: 042
  4. TRASYLOL [Suspect]
     Indication: CORONARY ARTERY BYPASS
     Dosage: BOLUS, FOLLOWED BY 25 ML PER HOUR INFUSION
     Route: 042
     Dates: start: 20030606, end: 20030606
  5. AVAPRO [Concomitant]
     Dosage: UNK
     Dates: end: 20041211
  6. TEMAZEPAM [Concomitant]
     Dosage: 10MG AS NEEDED
     Route: 048
  7. BACTRIM [Concomitant]
  8. ACETYLSALICYLIC ACID SRT [Concomitant]
     Dosage: 325 MG, QD
     Route: 048
     Dates: start: 20030602
  9. HYTRIN [Concomitant]
     Dosage: UNK
     Dates: start: 20040601
  10. MORPHINE [Concomitant]
     Dosage: 10MG
     Dates: start: 20030531
  11. WHOLE BLOOD [Concomitant]
     Dosage: 3 U, ONCE
     Route: 042
  12. METFORMIN HCL [Concomitant]
     Dosage: 1000 MG, BID
     Route: 048
  13. MAXOLON [Concomitant]
     Dosage: 10 MG
     Dates: start: 20030531
  14. ACETAMINOPHEN [Concomitant]
     Dosage: 1 G, UNK
     Route: 048
     Dates: start: 20030501
  15. UNKNOWN MEDICATIONS FROM CARIBBEAN [Concomitant]
     Dosage: PRIOR TO 04-JUN-2003

REACTIONS (11)
  - DEPRESSION [None]
  - EMOTIONAL DISORDER [None]
  - DEATH [None]
  - RENAL FAILURE [None]
  - PAIN [None]
  - ANHEDONIA [None]
  - INJURY [None]
  - FEAR [None]
  - MENTAL DISORDER [None]
  - ANXIETY [None]
  - UNEVALUABLE EVENT [None]
